FAERS Safety Report 4423567-6 (Version None)
Quarter: 2004Q3

REPORT INFORMATION
  Report Type: 
  Country: None (occurrence: None)
  Receive Date: 20040805
  Receipt Date: 20040723
  Transmission Date: 20050211
  Serious: Yes (Hospitalization)
  Sender: FDA-Public Use
  Company Number: FR-JNJFOC-20040706246

PATIENT
  Age: 51 Year
  Sex: Female

DRUGS (4)
  1. REMICADE [Suspect]
     Indication: RHEUMATOID ARTHRITIS
     Dosage: SEE IMAGE
     Route: 042
     Dates: start: 20030530, end: 20040112
  2. REMICADE [Suspect]
     Indication: RHEUMATOID ARTHRITIS
     Dosage: SEE IMAGE
     Route: 042
     Dates: start: 20040503
  3. METHOTREXATE [Suspect]
     Indication: RHEUMATOID ARTHRITIS
     Dosage: 20 MG, 4 IN 1 WEEK, ORAL
     Route: 048
  4. PREDNISONE TAB [Concomitant]

REACTIONS (8)
  - CARDIAC MURMUR [None]
  - DERMATITIS [None]
  - DRUG INTERACTION [None]
  - EYELID OEDEMA [None]
  - MOUTH CYST [None]
  - PERIODONTITIS [None]
  - PERIORBITAL OEDEMA [None]
  - PYREXIA [None]
